FAERS Safety Report 13475378 (Version 2)
Quarter: 2017Q3

REPORT INFORMATION
  Report Type: Report from Study
  Country: US (occurrence: US)
  Receive Date: 20170424
  Receipt Date: 20170728
  Transmission Date: 20171127
  Serious: No
  Sender: FDA-Public Use
  Company Number: US-AMGEN-USASL2017059817

PATIENT
  Age: 58 Year
  Sex: Male

DRUGS (1)
  1. REPATHA [Suspect]
     Active Substance: EVOLOCUMAB
     Indication: ACUTE MYOCARDIAL INFARCTION
     Dosage: 140 MG, Q2WK
     Route: 058
     Dates: start: 2015

REACTIONS (2)
  - Off label use [Unknown]
  - Myalgia [Not Recovered/Not Resolved]
